FAERS Safety Report 11619028 (Version 2)
Quarter: 2015Q4

REPORT INFORMATION
  Report Type: Spontaneous
  Country: DK (occurrence: DK)
  Receive Date: 20151012
  Receipt Date: 20151019
  Transmission Date: 20160304
  Serious: Yes (Other)
  Sender: FDA-Public Use
  Company Number: PHHY2015DK117575

PATIENT
  Sex: Female
  Weight: 85 kg

DRUGS (1)
  1. COSENTYX [Suspect]
     Active Substance: SECUKINUMAB
     Indication: PRODUCT USED FOR UNKNOWN INDICATION
     Dosage: 150 MG, UNK
     Route: 058
     Dates: start: 20150709, end: 20150717

REACTIONS (7)
  - Sneezing [Unknown]
  - Sensation of foreign body [Unknown]
  - Anaphylactoid reaction [Recovered/Resolved]
  - Cough [Unknown]
  - Choking [Unknown]
  - Upper airway obstruction [Unknown]
  - Chest discomfort [Unknown]

NARRATIVE: CASE EVENT DATE: 20150709
